FAERS Safety Report 20699462 (Version 2)
Quarter: 2022Q2

REPORT INFORMATION
  Report Type: Spontaneous
  Country: US (occurrence: US)
  Receive Date: 20220412
  Receipt Date: 20220422
  Transmission Date: 20220720
  Serious: Yes (Other)
  Sender: FDA-Public Use
  Company Number: US-BRISTOL-MYERS SQUIBB COMPANY-2022-012946

PATIENT
  Age: 70 Year
  Sex: Male
  Weight: 0 kg

DRUGS (1)
  1. LENALIDOMIDE [Suspect]
     Active Substance: LENALIDOMIDE
     Indication: Product used for unknown indication
     Dosage: 1 CAPSULE DAILY FOR 21 DAYS
     Route: 048
     Dates: start: 20191111

REACTIONS (1)
  - Neutropenia [Recovered/Resolved]
